FAERS Safety Report 8936137 (Version 1)
Quarter: 2012Q4

REPORT INFORMATION
  Report Type: Spontaneous
  Country: US (occurrence: None)
  Receive Date: 20121128
  Receipt Date: 20121128
  Transmission Date: 20130627
  Serious: Yes (Death, Hospitalization)
  Sender: FDA-Public Use
  Company Number: None

PATIENT
  Age: 70 Year
  Sex: Female

DRUGS (1)
  1. RITUXAN [Suspect]
     Indication: RHEUMATOID ARTHRITIS
     Dosage: 500mg IV every 4-6 month
     Route: 042
     Dates: start: 20101001, end: 20110331

REACTIONS (8)
  - Deep vein thrombosis [None]
  - Pulmonary embolism [None]
  - Pneumonia [None]
  - Colitis [None]
  - Urinary tract infection [None]
  - Thrombocytopenia [None]
  - Hypoxia [None]
  - Myocardial infarction [None]
